FAERS Safety Report 4899209-2 (Version None)
Quarter: 2006Q1

REPORT INFORMATION
  Report Type: 
  Country: None (occurrence: None)
  Receive Date: 20060106
  Receipt Date: 20050830
  Transmission Date: 20060701
  Serious: Yes (Other)
  Sender: FDA-Public Use
  Company Number: HQWYE237202SEP05

PATIENT
  Age: 51 Year
  Sex: Male
  Weight: 93.07 kg

DRUGS (1)
  1. PRIMATENE MIST [Suspect]
     Indication: ASTHMA
     Dosage: 1 INHALATION AS NEEDED, INHALATION
     Route: 055
     Dates: start: 20030101

REACTIONS (1)
  - DIZZINESS [None]
